FAERS Safety Report 6214834-4 (Version None)
Quarter: 2009Q2

REPORT INFORMATION
  Report Type: 
  Country: None (occurrence: None)
  Receive Date: 20090604
  Receipt Date: 20090521
  Transmission Date: 20091009
  Serious: Yes (Other)
  Sender: FDA-Public Use
  Company Number: US-PFIZER INC-2009199438

PATIENT
  Sex: Female

DRUGS (1)
  1. DETROL [Suspect]

REACTIONS (3)
  - CYSTOPEXY [None]
  - DRUG INEFFECTIVE [None]
  - HYSTERECTOMY [None]
